FAERS Safety Report 22041931 (Version 1)
Quarter: 2023Q1

REPORT INFORMATION
  Report Type: Spontaneous
  Country: KR (occurrence: KR)
  Receive Date: 20230227
  Receipt Date: 20230227
  Transmission Date: 20230418
  Serious: Yes (Other)
  Sender: FDA-Public Use
  Company Number: KR-DSJP-DSJ-2023-107041

PATIENT
  Age: 49 Year
  Sex: Male

DRUGS (3)
  1. EDOXABAN [Suspect]
     Active Substance: EDOXABAN
     Indication: Hypertrophic cardiomyopathy
     Dosage: UNK
     Route: 065
  2. BISOPROLOL [Suspect]
     Active Substance: BISOPROLOL
     Indication: Hypertrophic cardiomyopathy
     Dosage: UNK
     Route: 065
  3. VERAPAMIL [Suspect]
     Active Substance: VERAPAMIL HYDROCHLORIDE
     Indication: Hypertrophic cardiomyopathy
     Dosage: UNK
     Route: 065

REACTIONS (4)
  - Paralysis [Unknown]
  - Arteriovenous fistula [Unknown]
  - Horner^s syndrome [Unknown]
  - Haemoptysis [Unknown]
